FAERS Safety Report 9493219 (Version 1)
Quarter: 2013Q3

REPORT INFORMATION
  Report Type: Spontaneous
  Country: TN (occurrence: TN)
  Receive Date: 20130902
  Receipt Date: 20130902
  Transmission Date: 20140515
  Serious: Yes (Death, Other)
  Sender: FDA-Public Use
  Company Number: PHHY2013TN093629

PATIENT
  Age: 33 Year
  Sex: Male

DRUGS (6)
  1. CICLOSPORIN [Suspect]
     Indication: IMMUNOSUPPRESSION
  2. MYCOPHENOLATE MOFETIL [Suspect]
     Indication: IMMUNOSUPPRESSION
  3. TACROLIMUS [Suspect]
  4. SIROLIMUS [Suspect]
     Indication: IMMUNOSUPPRESSION
  5. CORTICOSTEROIDS [Suspect]
     Indication: IMMUNOSUPPRESSION
     Dosage: 10 MG, UNK
  6. GANCICLOVIR [Concomitant]

REACTIONS (9)
  - Bone marrow failure [Fatal]
  - Pyrexia [Fatal]
  - Hepatitis acute [Fatal]
  - Multi-organ failure [Fatal]
  - Pneumonia [Unknown]
  - Cholestasis [Unknown]
  - Neutropenia [Fatal]
  - Cough [Unknown]
  - Rales [Unknown]
